FAERS Safety Report 14121147 (Version 1)
Quarter: 2017Q4

REPORT INFORMATION
  Report Type: Spontaneous
  Country: US (occurrence: US)
  Receive Date: 20171024
  Receipt Date: 20171024
  Transmission Date: 20180321
  Serious: No
  Sender: FDA-Public Use
  Company Number: US-PERRIGO-17US001659

PATIENT
  Sex: Female

DRUGS (2)
  1. IMIQUIMOD. [Suspect]
     Active Substance: IMIQUIMOD
     Indication: PRODUCT USED FOR UNKNOWN INDICATION
     Dosage: ONE GENEROUS APPLICATION TO FOREHEAD, DAILY, MONDAY THROUGH FRIDAY
     Route: 061
  2. IMIQUIMOD. [Suspect]
     Active Substance: IMIQUIMOD
     Dosage: ONE GENEROUS APPLICATION TO CHEEKS, DAILY, MONDAY THROUGH FRIDAY

REACTIONS (10)
  - Hypersensitivity [Unknown]
  - Oral discomfort [Unknown]
  - Application site dryness [Unknown]
  - Spinal pain [Unknown]
  - Overdose [Unknown]
  - Hypovitaminosis [Unknown]
  - Abdominal pain upper [Unknown]
  - Gastric pH decreased [Unknown]
  - Feeling abnormal [Unknown]
  - Gastrointestinal inflammation [Unknown]
